FAERS Safety Report 8113472-6 (Version None)
Quarter: 2011Q4

REPORT INFORMATION
  Report Type: 
  Country: None (occurrence: None)
  Receive Date: 20111227
  Receipt Date: 20111108
  Transmission Date: 20120403
  Serious: Yes (Other)
  Sender: FDA-Public Use
  Company Number: PHEH2011US07548

PATIENT
  Age: 39 Year
  Sex: Female
  Weight: 49 kg

DRUGS (1)
  1. GILENYA [Suspect]
     Indication: MULTIPLE SCLEROSIS
     Dosage: 0.5 MG, BID, ORAL
     Route: 048
     Dates: start: 20110101

REACTIONS (5)
  - MULTIPLE SCLEROSIS RELAPSE [None]
  - OVERDOSE [None]
  - BALANCE DISORDER [None]
  - EYE PAIN [None]
  - HEADACHE [None]
